FAERS Safety Report 8843274 (Version 3)
Quarter: 2013Q1

REPORT INFORMATION
  Report Type: Spontaneous
  Country: US (occurrence: US)
  Receive Date: 20121016
  Receipt Date: 20130220
  Transmission Date: 20140127
  Serious: No
  Sender: FDA-Public Use
  Company Number: US-ASTRAZENECA-2012SE77214

PATIENT
  Age: 59 Year
  Sex: Female

DRUGS (4)
  1. NEXIUM [Suspect]
     Indication: GASTROOESOPHAGEAL REFLUX DISEASE
     Route: 048
  2. NEXIUM [Suspect]
     Indication: GASTROOESOPHAGEAL REFLUX DISEASE
     Dosage: TWICE DAILY
     Route: 048
  3. LODINE [Concomitant]
  4. PREDNISONE [Concomitant]

REACTIONS (7)
  - Gastric disorder [Unknown]
  - Excoriation [Unknown]
  - Ulcer [Unknown]
  - Adverse event [Unknown]
  - Malaise [Unknown]
  - Intentional drug misuse [Unknown]
  - Off label use [Unknown]
